FAERS Safety Report 10618875 (Version 1)
Quarter: 2014Q4

REPORT INFORMATION
  Report Type: Spontaneous
  Country: CN (occurrence: None)
  Receive Date: 20141125
  Receipt Date: 20141125
  Transmission Date: 20150529
  Serious: Yes (Hospitalization)
  Sender: FDA-Public Use
  Company Number: PR-AE14-001262

PATIENT
  Sex: Female

DRUGS (2)
  1. CIMETIDINE TABLETS, USP [Suspect]
     Active Substance: CIMETIDINE
     Indication: CHRONIC GASTRITIS
     Route: 048
  2. CIMETIDINE TABLETS, USP [Suspect]
     Active Substance: CIMETIDINE
     Indication: GASTRIC ULCER
     Route: 048

REACTIONS (4)
  - Abdominal discomfort [None]
  - Gastrointestinal disorder [None]
  - Abdominal pain upper [None]
  - Polyp [None]

NARRATIVE: CASE EVENT DATE: 2014
